FAERS Safety Report 18433010 (Version 1)
Quarter: 2020Q4

REPORT INFORMATION
  Report Type: Spontaneous
  Country: US (occurrence: US)
  Receive Date: 20201027
  Receipt Date: 20201027
  Transmission Date: 20210114
  Serious: Yes (Hospitalization)
  Sender: FDA-Public Use
  Company Number: US-MYLANLABS-2020M1090090

PATIENT
  Age: 44 Year
  Sex: Male

DRUGS (18)
  1. FENTANYL. [Suspect]
     Active Substance: FENTANYL
     Indication: INTRACRANIAL PRESSURE INCREASED
     Dosage: UNK
     Route: 065
  2. ROCURONIUM [Suspect]
     Active Substance: ROCURONIUM BROMIDE
     Indication: HYPERCAPNIA
  3. ARGATROBAN. [Suspect]
     Active Substance: ARGATROBAN
     Indication: CEREBRAL VENOUS SINUS THROMBOSIS
     Dosage: DOSE TITRATED TO 1.5-2 X BASELINE PARTIAL THROMBOPLASTIN TIME STARTING AT A REDUCED RATE..
     Route: 065
  4. HYPERTONIC SALINE SOLUTION [Suspect]
     Active Substance: SODIUM CHLORIDE
     Indication: HYPERCAPNIA
  5. PENTOBARBITAL. [Suspect]
     Active Substance: PENTOBARBITAL
     Indication: INTRACRANIAL PRESSURE INCREASED
  6. HEPARIN [Suspect]
     Active Substance: HEPARIN SODIUM
     Indication: CEREBRAL VENOUS SINUS THROMBOSIS
     Dosage: UNK, 0.5 DAY, ON POST OPERATIVE DAY 2
     Route: 058
  7. HYPERTONIC SALINE SOLUTION [Suspect]
     Active Substance: SODIUM CHLORIDE
     Indication: INTRACRANIAL PRESSURE INCREASED
     Dosage: BOLUS
  8. IMMUNE GLOBULIN [Concomitant]
     Indication: HEPARIN-INDUCED THROMBOCYTOPENIA
     Dosage: UNK, 1G/KG
     Route: 042
  9. FENTANYL. [Suspect]
     Active Substance: FENTANYL
     Indication: SEDATION
  10. HYPERTONIC SALINE SOLUTION [Suspect]
     Active Substance: SODIUM CHLORIDE
     Indication: HYPERTENSION
  11. PENTOBARBITAL. [Suspect]
     Active Substance: PENTOBARBITAL
     Indication: MEDICAL INDUCTION OF COMA
     Dosage: UNK
     Route: 065
  12. ROCURONIUM [Suspect]
     Active Substance: ROCURONIUM BROMIDE
     Indication: INTRACRANIAL PRESSURE INCREASED
     Dosage: UNK
     Route: 065
  13. ROCURONIUM [Suspect]
     Active Substance: ROCURONIUM BROMIDE
     Indication: SEDATION
  14. FENTANYL. [Suspect]
     Active Substance: FENTANYL
     Indication: HYPERTENSION
  15. FENTANYL. [Suspect]
     Active Substance: FENTANYL
     Indication: HYPERCAPNIA
  16. FONDAPARINUX [Suspect]
     Active Substance: FONDAPARINUX
     Indication: CEREBRAL VENOUS SINUS THROMBOSIS
     Dosage: 5 MILLIGRAM, QD
     Route: 042
  17. HEPARIN [Suspect]
     Active Substance: HEPARIN SODIUM
     Dosage: THRICE DAILY. ON POST OPERATIVE DAY 3
     Route: 058
  18. ROCURONIUM [Suspect]
     Active Substance: ROCURONIUM BROMIDE
     Indication: HYPERTENSION

REACTIONS (2)
  - Drug ineffective [Unknown]
  - Heparin-induced thrombocytopenia [Recovered/Resolved]
